FAERS Safety Report 25742150 (Version 1)
Quarter: 2025Q3

REPORT INFORMATION
  Report Type: Spontaneous
  Country: US (occurrence: US)
  Receive Date: 20250829
  Receipt Date: 20250829
  Transmission Date: 20251020
  Serious: Yes (Other)
  Sender: ReacX Pharmaceuticals
  Company Number: US-REACX PHARMACEUTICALS-2025RCX00081

PATIENT
  Age: 53 Year
  Sex: Female

DRUGS (4)
  1. BUPRENORPHINE [Suspect]
     Active Substance: BUPRENORPHINE
     Indication: Drug use disorder
     Dosage: 8 MG, 1X/DAY (1-3 TABLETS)
  2. BUPRENORPHINE [Suspect]
     Active Substance: BUPRENORPHINE
     Dosage: 24 MG, 1X/DAY (1-3 TABLETS)
  3. BUPRENORPHINE\NALOXONE [Suspect]
     Active Substance: BUPRENORPHINE\NALOXONE
     Indication: Drug use disorder
     Dosage: 8 MG, 1X/DAY (1-3 STRIPS)
  4. BUPRENORPHINE\NALOXONE [Suspect]
     Active Substance: BUPRENORPHINE\NALOXONE
     Dosage: 24 MG, 1X/DAY (1-3 STRIPS)

REACTIONS (1)
  - Squamous cell carcinoma [Recovered/Resolved]
